FAERS Safety Report 15777869 (Version 6)
Quarter: 2019Q1

REPORT INFORMATION
  Report Type: Report from Study
  Country: JP (occurrence: JP)
  Receive Date: 20181231
  Receipt Date: 20190125
  Transmission Date: 20190417
  Serious: Yes (Other)
  Sender: FDA-Public Use
  Company Number: PHHY2018JP197536

PATIENT
  Age: 42 Year
  Sex: Female
  Weight: 83.8 kg

DRUGS (19)
  1. TALION [Concomitant]
     Indication: PSORIATIC ARTHROPATHY
     Dosage: 40 MG, UNK
     Route: 048
  2. LENDORMIN [Concomitant]
     Active Substance: BROTIZOLAM
     Indication: INSOMNIA
     Dosage: 0.5 MG, UNK
     Route: 048
  3. APREMILAST [Concomitant]
     Active Substance: APREMILAST
     Indication: PSORIASIS
     Dosage: 60 MG, UNK
     Route: 048
     Dates: start: 20170914
  4. METFORMIN HYDROCHLORIDE. [Concomitant]
     Active Substance: METFORMIN HYDROCHLORIDE
     Dosage: 500 MG, UNK
     Route: 048
  5. COSENTYX [Suspect]
     Active Substance: SECUKINUMAB
     Indication: PSORIATIC ARTHROPATHY
     Dosage: 300 MG, QW
     Route: 058
     Dates: start: 20161011, end: 20161108
  6. NEORAL [Suspect]
     Active Substance: CYCLOSPORINE
     Dosage: 200 MG, UNK
     Route: 048
     Dates: start: 20170302
  7. METHOTREXATE. [Concomitant]
     Active Substance: METHOTREXATE
     Indication: PSORIASIS
     Dosage: UNK
     Route: 048
  8. XYZAL [Concomitant]
     Active Substance: LEVOCETIRIZINE DIHYDROCHLORIDE
     Indication: PSORIATIC ARTHROPATHY
     Dosage: 10 MG, UNK
     Route: 048
  9. GLACTIV [Concomitant]
     Active Substance: SITAGLIPTIN
     Indication: DIABETES MELLITUS
     Dosage: 50 MG, UNK
     Route: 048
  10. KINDAVATE [Concomitant]
     Active Substance: CLOBETASONE BUTYRATE
     Indication: PSORIATIC ARTHROPATHY
     Dosage: UNK UNK, QD
     Route: 048
  11. NEORAL [Suspect]
     Active Substance: CYCLOSPORINE
     Indication: PSORIATIC ARTHROPATHY
     Dosage: 100 MG, UNK
     Route: 048
     Dates: start: 20170218, end: 20170301
  12. CRESTOR [Concomitant]
     Active Substance: ROSUVASTATIN CALCIUM
     Indication: HYPERTENSION
     Dosage: 2.5 MG, UNK
     Route: 048
  13. METFORMIN HYDROCHLORIDE. [Concomitant]
     Active Substance: METFORMIN HYDROCHLORIDE
     Indication: DIABETES MELLITUS
     Dosage: 1000 MG, UNK
     Route: 048
     Dates: start: 20170830
  14. ALLELOCK [Concomitant]
     Active Substance: OLOPATADINE HYDROCHLORIDE
     Indication: PSORIATIC ARTHROPATHY
     Dosage: 10 MG, UNK
     Route: 048
  15. TRAMCET [Concomitant]
     Active Substance: ACETAMINOPHEN\TRAMADOL
     Indication: PSORIATIC ARTHROPATHY
     Dosage: 3 DF, UNK
     Route: 048
     Dates: end: 20161228
  16. NOVAMIN [Concomitant]
     Indication: VOMITING
     Dosage: 3 DF, UNK
     Route: 048
     Dates: start: 20161207, end: 20161228
  17. FORXIGA [Concomitant]
     Active Substance: DAPAGLIFLOZIN
     Indication: DIABETES MELLITUS
     Dosage: 5 MG, UNK
     Route: 048
     Dates: start: 20170314, end: 20170830
  18. OXAROL [Concomitant]
     Active Substance: MAXACALCITOL
     Indication: PSORIATIC ARTHROPATHY
     Dosage: UNK
     Route: 048
  19. DOVOBET [Concomitant]
     Active Substance: BETAMETHASONE\CALCIPOTRIENE
     Indication: PSORIATIC ARTHROPATHY
     Dosage: UNK UNK, QD
     Route: 061

REACTIONS (20)
  - Erythema [Recovering/Resolving]
  - Acanthosis [Recovering/Resolving]
  - Ocular hyperaemia [Unknown]
  - Drug ineffective [Unknown]
  - Blepharitis [Recovering/Resolving]
  - Erythema [Unknown]
  - Visual acuity reduced [Recovered/Resolved]
  - Erythema of eyelid [Recovered/Resolved]
  - Psoriasis [Recovering/Resolving]
  - Visual impairment [Recovered/Resolved]
  - Lacrimation increased [Unknown]
  - Eye inflammation [Unknown]
  - Rash [Recovering/Resolving]
  - Dermatitis psoriasiform [Recovering/Resolving]
  - Conjunctival hyperaemia [Recovered/Resolved]
  - Arthralgia [Recovering/Resolving]
  - Conjunctivitis [Recovered/Resolved]
  - Lymphocytic infiltration [Recovering/Resolving]
  - Psoriatic arthropathy [Not Recovered/Not Resolved]
  - Dry eye [Recovered/Resolved]

NARRATIVE: CASE EVENT DATE: 20161101
